FAERS Safety Report 24751415 (Version 1)
Quarter: 2024Q4

REPORT INFORMATION
  Report Type: Spontaneous
  Country: PL (occurrence: PL)
  Receive Date: 20241219
  Receipt Date: 20241219
  Transmission Date: 20250114
  Serious: Yes (Hospitalization)
  Sender: SANDOZ
  Company Number: None

PATIENT
  Age: 34 Year
  Sex: Female

DRUGS (3)
  1. ACYCLOVIR [Suspect]
     Active Substance: ACYCLOVIR
     Indication: Product used for unknown indication
     Dosage: UNKNOWN
     Route: 065
  2. CEFUROXIME AXETIL [Suspect]
     Active Substance: CEFUROXIME AXETIL
     Indication: Product used for unknown indication
     Dosage: UNKNOWN
     Route: 065
  3. DESOGESTREL [Suspect]
     Active Substance: DESOGESTREL
     Indication: Product used for unknown indication
     Dosage: UNKNOWN
     Route: 065

REACTIONS (1)
  - Erythema nodosum [Recovering/Resolving]
